FAERS Safety Report 10883324 (Version 2)
Quarter: 2015Q1

REPORT INFORMATION
  Report Type: Spontaneous
  Country: AU (occurrence: AU)
  Receive Date: 20150303
  Receipt Date: 20150305
  Transmission Date: 20150721
  Serious: Yes (Other)
  Sender: FDA-Public Use
  Company Number: AU-SYMPLMED PHARMACEUTICALS-2013SYMPLMED000005

PATIENT

DRUGS (2)
  1. COVERAM [Suspect]
     Active Substance: AMLODIPINE\PERINDOPRIL
     Indication: PRODUCT USED FOR UNKNOWN INDICATION
     Dosage: 10/5MG (UNKNOWN DAILY DOSE)
     Route: 048
  2. COVERAM [Suspect]
     Active Substance: AMLODIPINE\PERINDOPRIL
     Indication: PRODUCT USED FOR UNKNOWN INDICATION
     Dosage: 10/5MG (UNKNOWN DAILY DOSE)
     Route: 048

REACTIONS (1)
  - Hypertension [Unknown]

NARRATIVE: CASE EVENT DATE: 2013
